FAERS Safety Report 23479939 (Version 1)
Quarter: 2024Q1

REPORT INFORMATION
  Report Type: Spontaneous
  Country: NL (occurrence: NL)
  Receive Date: 20240205
  Receipt Date: 20240205
  Transmission Date: 20240409
  Serious: Yes (Hospitalization, Other)
  Sender: FDA-Public Use
  Company Number: NL-LRB-00944054

PATIENT
  Age: 51 Year
  Sex: Male
  Weight: 115 kg

DRUGS (1)
  1. HYDROCHLOROTHIAZIDE\LOSARTAN POTASSIUM [Suspect]
     Active Substance: HYDROCHLOROTHIAZIDE\LOSARTAN POTASSIUM
     Indication: Hypertension
     Dosage: 1 DOSAGE FORM, ONCE A DAY
     Route: 065
     Dates: start: 20160810, end: 20240116

REACTIONS (2)
  - Hypokalaemia [Recovered/Resolved]
  - Electrocardiogram QT prolonged [Recovered/Resolved]
